FAERS Safety Report 21871625 (Version 1)
Quarter: 2023Q1

REPORT INFORMATION
  Report Type: Spontaneous
  Country: CN (occurrence: CN)
  Receive Date: 20230117
  Receipt Date: 20230117
  Transmission Date: 20230417
  Serious: Yes (Other)
  Sender: FDA-Public Use
  Company Number: CN-PFIZER INC-PV202300008586

PATIENT
  Age: 3 Year
  Sex: Male
  Weight: 15 kg

DRUGS (4)
  1. AZITHROMYCIN [Suspect]
     Active Substance: AZITHROMYCIN
     Indication: Upper respiratory tract infection
     Dosage: 0.15 G, 1X/DAY
     Route: 048
     Dates: start: 20221211, end: 20221217
  2. IBUPROFEN [Suspect]
     Active Substance: IBUPROFEN
     Indication: Upper respiratory tract infection
     Dosage: 0.1 G, 1X/DAY
     Route: 048
     Dates: start: 20221211, end: 20221217
  3. CHLORPHENIRAMINE MALEATE\GUAIFENESIN\METHYLEPHEDRINE HYDROCHLORIDE, (+ [Suspect]
     Active Substance: CHLORPHENIRAMINE MALEATE\GUAIFENESIN\METHYLEPHEDRINE HYDROCHLORIDE, (+/-)-
     Indication: Upper respiratory tract infection
     Dosage: 25 MG, 3X/DAY
     Route: 048
     Dates: start: 20221211, end: 20221217
  4. HERBALS [Suspect]
     Active Substance: HERBALS
     Indication: Upper respiratory tract infection
     Dosage: 10 ML, 3X/DAY
     Route: 048
     Dates: start: 20221211, end: 20221217

REACTIONS (3)
  - Rash maculo-papular [Recovered/Resolved]
  - Urticaria [Recovered/Resolved]
  - Pruritus [Recovered/Resolved]

NARRATIVE: CASE EVENT DATE: 20221213
